FAERS Safety Report 16624504 (Version 1)
Quarter: 2019Q3

REPORT INFORMATION
  Report Type: Spontaneous
  Country: US (occurrence: US)
  Receive Date: 20190611
  Receipt Date: 20190611
  Transmission Date: 20191004
  Serious: Yes (Death)
  Sender: FDA-Public Use
  Company Number: None

PATIENT
  Age: 80 Year
  Sex: Male
  Weight: 72.57 kg

DRUGS (1)
  1. BEVACIZUMAB INJ IN EYE ` [Suspect]
     Active Substance: BEVACIZUMAB
     Indication: NEOVASCULAR AGE-RELATED MACULAR DEGENERATION
     Dosage: ?          OTHER ROUTE:INJECTION?
     Dates: start: 20190411, end: 20190411

REACTIONS (4)
  - Dyspnoea [None]
  - Gait inability [None]
  - Abdominal discomfort [None]
  - Feeding disorder [None]

NARRATIVE: CASE EVENT DATE: 20190418
